FAERS Safety Report 7969844-3 (Version None)
Quarter: 2011Q4

REPORT INFORMATION
  Report Type: 
  Country: None (occurrence: None)
  Receive Date: 20111122
  Receipt Date: 20110706
  Transmission Date: 20120403
  Serious: No
  Sender: FDA-Public Use
  Company Number: PHEH2011US02623

PATIENT
  Age: 51 Year
  Sex: Female
  Weight: 56 kg

DRUGS (5)
  1. DANTROLENE SODIUM [Concomitant]
  2. BACLOFEN [Concomitant]
  3. BUPROPION HCL [Concomitant]
  4. VITAMIN B12 (CYANOCOBLAMIN) [Concomitant]
  5. GILENYA [Suspect]
     Indication: PROGRESSIVE MULTIPLE SCLEROSIS
     Dosage: 1 MG, DAILY, ORAL
     Route: 048
     Dates: start: 20110223

REACTIONS (5)
  - OVERDOSE [None]
  - MEMORY IMPAIRMENT [None]
  - BACK PAIN [None]
  - GAIT DISTURBANCE [None]
  - DEPRESSED MOOD [None]
